FAERS Safety Report 9236250 (Version 2)
Quarter: 2013Q3

REPORT INFORMATION
  Report Type: Spontaneous
  Country: US (occurrence: US)
  Receive Date: 20130417
  Receipt Date: 20130710
  Transmission Date: 20140515
  Serious: No
  Sender: FDA-Public Use
  Company Number: US-PFIZER INC-2013112329

PATIENT
  Age: 35 Year
  Sex: Male
  Weight: 84.35 kg

DRUGS (2)
  1. BENEFIX [Suspect]
     Indication: FACTOR IX DEFICIENCY
     Dosage: 40 IU/KG, MONTHLY
  2. BENEFIX [Suspect]
     Dosage: 50 IU/KG, AS NEEDED (ON DEMAND)

REACTIONS (1)
  - Disease complication [Unknown]
